FAERS Safety Report 4789536-1 (Version None)
Quarter: 2005Q4

REPORT INFORMATION
  Report Type: 
  Country: None (occurrence: None)
  Receive Date: 20051004
  Receipt Date: 20050921
  Transmission Date: 20060501
  Serious: Yes (Hospitalization, Other)
  Sender: FDA-Public Use
  Company Number: USA0509106977

PATIENT
  Sex: Female

DRUGS (3)
  1. FORTEO [Suspect]
     Dates: start: 20050701
  2. LEXAPRO [Concomitant]
  3. AMITRIPTYLINE HCL [Concomitant]

REACTIONS (5)
  - FALL [None]
  - FEMUR FRACTURE [None]
  - INCORRECT DOSE ADMINISTERED [None]
  - ORAL INTAKE REDUCED [None]
  - PHARMACEUTICAL PRODUCT COMPLAINT [None]
